FAERS Safety Report 10403700 (Version 2)
Quarter: 2014Q3

REPORT INFORMATION
  Report Type: Spontaneous
  Country: US (occurrence: US)
  Receive Date: 20140822
  Receipt Date: 20140822
  Transmission Date: 20150326
  Serious: Yes (Hospitalization, Other)
  Sender: FDA-Public Use
  Company Number: US-009507513-2009-196751-NL

PATIENT
  Sex: Female
  Weight: 99.77 kg

DRUGS (2)
  1. VITAMINS (UNSPECIFIED) [Concomitant]
     Active Substance: VITAMINS
     Indication: GENERAL PHYSICAL CONDITION
  2. NUVARING [Suspect]
     Active Substance: ETHINYL ESTRADIOL\ETONOGESTREL
     Indication: CONTRACEPTION
     Dosage: 0.120 MG, QM
     Route: 067
     Dates: start: 200611, end: 200705

REACTIONS (9)
  - Hypotension [Recovered/Resolved]
  - Epistaxis [Unknown]
  - Anaemia [Unknown]
  - Headache [Unknown]
  - Tooth fracture [Unknown]
  - Pulmonary embolism [Recovered/Resolved]
  - Pulmonary hypertension [Recovered/Resolved]
  - Rectal haemorrhage [Unknown]
  - Hospitalisation [Unknown]

NARRATIVE: CASE EVENT DATE: 200705
